FAERS Safety Report 15232121 (Version 2)
Quarter: 2018Q3

REPORT INFORMATION
  Report Type: Report from Study
  Country: None (occurrence: US)
  Receive Date: 20180802
  Receipt Date: 20180821
  Transmission Date: 20181010
  Serious: Yes (Death, Hospitalization)
  Sender: FDA-Public Use
  Company Number: US-ABBVIE-18K-163-2438940-00

PATIENT
  Age: 40 Year
  Sex: Male

DRUGS (1)
  1. MAVYRET [Suspect]
     Active Substance: GLECAPREVIR\PIBRENTASVIR
     Indication: HEPATITIS C
     Route: 048
     Dates: start: 20180607, end: 20180727

REACTIONS (3)
  - Endocarditis [Fatal]
  - Cardiac arrest [Fatal]
  - Endocarditis [Recovered/Resolved]

NARRATIVE: CASE EVENT DATE: 2018
